FAERS Safety Report 23322492 (Version 5)
Quarter: 2024Q1

REPORT INFORMATION
  Report Type: Report from Study
  Country: BE (occurrence: BE)
  Receive Date: 20231220
  Receipt Date: 20240110
  Transmission Date: 20240410
  Serious: Yes (Hospitalization)
  Sender: FDA-Public Use
  Company Number: BE-ABBVIE-5544493

PATIENT
  Sex: Female
  Weight: 70 kg

DRUGS (11)
  1. CARBIDOPA\LEVODOPA [Suspect]
     Active Substance: CARBIDOPA\LEVODOPA
     Indication: Parkinson^s disease
     Dosage: MD: 0.0 ML, CD: 1.9 ML/H, ED: 2.5 ML DURING 24 HOURS
     Route: 050
     Dates: start: 20231211, end: 20231219
  2. CARBIDOPA\LEVODOPA [Suspect]
     Active Substance: CARBIDOPA\LEVODOPA
     Route: 050
     Dates: start: 20170410
  3. CARBIDOPA\LEVODOPA [Suspect]
     Active Substance: CARBIDOPA\LEVODOPA
     Dosage: MD: 4.7ML, CD: 4.6 ML/H, ED: 3.0 ML DURING 24 HOURS
     Route: 050
     Dates: start: 20231219, end: 20231219
  4. CARBIDOPA\LEVODOPA [Suspect]
     Active Substance: CARBIDOPA\LEVODOPA
     Dosage: ED: 2.5 ML, CND:1.5 ML/H DURING 24 HOURS?LAST ADMIN DATE 2023
     Route: 050
     Dates: start: 2023
  5. CARBIDOPA\LEVODOPA [Suspect]
     Active Substance: CARBIDOPA\LEVODOPA
     Dosage: MD: 5.5 ML, CD: 4.0 ML/H, ED: 2.5 ML DURING 24 HOURS
     Route: 050
     Dates: start: 20240104
  6. CARBIDOPA\LEVODOPA [Suspect]
     Active Substance: CARBIDOPA\LEVODOPA
     Dosage: MD: 0.0 ML, ED: 2.5 ML, CND: 1.5 ML/H DURING 24 HOURS?LAST ADMIN DATE 2023
     Route: 050
     Dates: start: 20231219
  7. RIVOTRIL [Concomitant]
     Active Substance: CLONAZEPAM
     Indication: Product used for unknown indication
     Dosage: FORM STRENGTH: 2 MILLIGRAMS?FREQUENCY TEXT: 22.00
  8. STALEVO [Concomitant]
     Active Substance: CARBIDOPA\ENTACAPONE\LEVODOPA
     Indication: Product used for unknown indication
     Dosage: FORM STRENGTH: 150 UNKNOWN UNITS
  9. STALEVO [Concomitant]
     Active Substance: CARBIDOPA\ENTACAPONE\LEVODOPA
     Indication: Product used for unknown indication
     Dosage: FORM STRENGTH: 200 MILLIGRAMS??FREQUENCY TEXT: 07.45
  10. PRAMIPEXOLE [Concomitant]
     Active Substance: PRAMIPEXOLE\PRAMIPEXOLE DIHYDROCHLORIDE
     Indication: Product used for unknown indication
     Dosage: FORM STRENGTH: 3.15 UNKNOWN UNITS?FREQUENCY TEXT: ONCE IN MORNING
  11. BENSERAZIDE\LEVODOPA [Suspect]
     Active Substance: BENSERAZIDE\LEVODOPA
     Indication: Product used for unknown indication
     Dosage: 1/4TH OF PROLOPA 250
     Route: 065

REACTIONS (13)
  - Fall [Unknown]
  - Drug ineffective [Unknown]
  - Freezing phenomenon [Not Recovered/Not Resolved]
  - Dyskinesia [Not Recovered/Not Resolved]
  - Dystonia [Unknown]
  - Therapeutic product effect incomplete [Unknown]
  - Gait disturbance [Not Recovered/Not Resolved]
  - On and off phenomenon [Unknown]
  - Mobility decreased [Unknown]
  - Overdose [Unknown]
  - Device connection issue [Unknown]
  - Fine motor skill dysfunction [Unknown]
  - Off label use [Unknown]

NARRATIVE: CASE EVENT DATE: 20230101
